FAERS Safety Report 9781194 (Version 1)
Quarter: 2013Q4

REPORT INFORMATION
  Report Type: Spontaneous
  Country: US (occurrence: None)
  Receive Date: 20131223
  Receipt Date: 20131223
  Transmission Date: 20140711
  Serious: Yes (Other)
  Sender: FDA-Public Use
  Company Number: None

PATIENT
  Age: 37 Year
  Sex: Female
  Weight: 72.58 kg

DRUGS (3)
  1. CITALOPRAM HYDROBROMIDE [Suspect]
     Indication: MAJOR DEPRESSION
     Dosage: ONE TAB DAILY IN AM, ONCE DAILY, TAKEN BY MOUTH
  2. CITALOPRAM HYDROBROMIDE [Suspect]
     Indication: GENERALISED ANXIETY DISORDER
     Dosage: ONE TAB DAILY IN AM, ONCE DAILY, TAKEN BY MOUTH
  3. CHANTIX [Suspect]
     Indication: SMOKING CESSATION THERAPY
     Dosage: THE ^USUAL^ DOSE, ONCE DAILY, TAKEN BY MOUTH
     Dates: start: 20071010, end: 20071215

REACTIONS (1)
  - Anorgasmia [None]
